FAERS Safety Report 6153815-6 (Version None)
Quarter: 2009Q2

REPORT INFORMATION
  Report Type: 
  Country: None (occurrence: None)
  Receive Date: 20090414
  Receipt Date: 20070410
  Transmission Date: 20091009
  Serious: Yes (Hospitalization, Other)
  Sender: FDA-Public Use
  Company Number: US-ASTRAZENECA-2006UW21019

PATIENT
  Age: 407 Month
  Sex: Male
  Weight: 197.9 kg

DRUGS (17)
  1. SEROQUEL [Suspect]
     Indication: DEPRESSION
     Route: 048
     Dates: start: 20010808
  2. SEROQUEL [Suspect]
     Dosage: 25-900 MG.
     Route: 048
     Dates: start: 20020814
  3. GLUCOTROL [Concomitant]
  4. PROTONIX [Concomitant]
  5. LIPITOR [Concomitant]
  6. LASIX [Concomitant]
  7. PAXIL [Concomitant]
  8. CELEBREX [Concomitant]
  9. TOPAMEX [Concomitant]
  10. ZOLOFT [Concomitant]
  11. WELLBUTRIN [Concomitant]
  12. LOTREL [Concomitant]
  13. ACIPHEX [Concomitant]
  14. LEXAPRO [Concomitant]
  15. FLOMAX [Concomitant]
  16. AMBIEN [Concomitant]
  17. GEODONE [Concomitant]

REACTIONS (32)
  - ABDOMINAL PAIN [None]
  - ABDOMINAL PAIN UPPER [None]
  - ARTHRALGIA [None]
  - BACK PAIN [None]
  - CARDIAC FAILURE CONGESTIVE [None]
  - CELLULITIS [None]
  - CONSTIPATION [None]
  - DERMATITIS [None]
  - DIABETES MELLITUS [None]
  - DIABETIC COMPLICATION [None]
  - DIARRHOEA [None]
  - DRY MOUTH [None]
  - DYSURIA [None]
  - FATIGUE [None]
  - GASTROOESOPHAGEAL REFLUX DISEASE [None]
  - HAEMATOCHEZIA [None]
  - HAEMORRHOIDS [None]
  - HALLUCINATION, AUDITORY [None]
  - JOINT SWELLING [None]
  - LOWER RESPIRATORY TRACT INFECTION [None]
  - NERVOUSNESS [None]
  - OEDEMA PERIPHERAL [None]
  - OROPHARYNGEAL PAIN [None]
  - PAIN IN EXTREMITY [None]
  - PALPITATIONS [None]
  - PHARYNGITIS [None]
  - PROSTATOMEGALY [None]
  - RECTAL HAEMORRHAGE [None]
  - SINUSITIS [None]
  - SLEEP APNOEA SYNDROME [None]
  - TOOTHACHE [None]
  - URINARY TRACT INFECTION [None]
